FAERS Safety Report 9405027 (Version 1)
Quarter: 2013Q3

REPORT INFORMATION
  Report Type: Spontaneous
  Country: US (occurrence: US)
  Receive Date: 20130717
  Receipt Date: 20130717
  Transmission Date: 20140515
  Serious: No
  Sender: FDA-Public Use
  Company Number: US-BRISTOL-MYERS SQUIBB COMPANY-18808923

PATIENT
  Sex: Male

DRUGS (2)
  1. YERVOY [Suspect]
     Dosage: 2ND DOSE-3 WEEKS LATER ON 10APR2013
     Dates: start: 20130321
  2. VEMURAFENIB [Suspect]

REACTIONS (1)
  - Diarrhoea [Unknown]
